FAERS Safety Report 14235354 (Version 2)
Quarter: 2018Q1

REPORT INFORMATION
  Report Type: Spontaneous
  Country: JP (occurrence: JP)
  Receive Date: 20171129
  Receipt Date: 20180111
  Transmission Date: 20180508
  Serious: Yes (Hospitalization, Other)
  Sender: FDA-Public Use
  Company Number: JP-VIFOR (INTERNATIONAL) INC.-VIT-2017-09604

PATIENT
  Age: 71 Year
  Sex: Male
  Weight: 58 kg

DRUGS (4)
  1. MIRCERA [Suspect]
     Active Substance: METHOXY POLYETHYLENE GLYCOL-EPOETIN BETA
     Indication: NEPHROGENIC ANAEMIA
     Route: 042
     Dates: start: 20170811, end: 2017
  2. FERROMIA [Concomitant]
     Active Substance: SODIUM FERROUS CITRATE
     Dosage: THE FRACTIONAL DOSE FREQUENCY WAS UNCERTAIN AND DOSE INTERVAL UNCERTAINLY (100 MG)
     Route: 048
  3. TOYOFAROL [Concomitant]
     Active Substance: ALFACALCIDOL
     Dosage: THE FRACTIONAL DOSE FREQUENCY WAS UNCERTAIN AND DOSE INTERVAL UNCERTAINLY (0.25 MCG)
     Route: 048
     Dates: start: 20170717
  4. CALTAN OD [Concomitant]
     Dosage: THE FRACTIONAL DOSE FREQUENCY WAS UNCERTAIN AND DOSE INTERVAL UNCERTAINLY (1500 MG)
     Route: 048

REACTIONS (13)
  - Condition aggravated [Recovering/Resolving]
  - Shunt occlusion [Unknown]
  - Urticaria [Recovering/Resolving]
  - Dyspnoea [Recovering/Resolving]
  - Hypoaesthesia [Recovering/Resolving]
  - Pruritus generalised [Recovered/Resolved]
  - Erythema [Recovering/Resolving]
  - Anaphylactic reaction [Recovering/Resolving]
  - Blood pressure decreased [Recovering/Resolving]
  - Xanthopsia [Recovering/Resolving]
  - Vision blurred [Recovering/Resolving]
  - Respiratory distress [Recovering/Resolving]
  - Shock symptom [Recovering/Resolving]

NARRATIVE: CASE EVENT DATE: 20170811
